FAERS Safety Report 25756249 (Version 1)
Quarter: 2025Q3

REPORT INFORMATION
  Report Type: Spontaneous
  Country: EG (occurrence: EG)
  Receive Date: 20250903
  Receipt Date: 20250903
  Transmission Date: 20251021
  Serious: Yes (Hospitalization, Other)
  Sender: NOVO NORDISK
  Company Number: EG-NOVOPROD-1507632

PATIENT
  Age: 386 Month
  Sex: Male
  Weight: 73 kg

DRUGS (4)
  1. LANTUS [Concomitant]
     Active Substance: INSULIN GLARGINE
     Indication: Type 1 diabetes mellitus
     Dosage: 16 IU, QD AT NIGHT AT 10PM
     Route: 058
  2. OSTEOCARE [CALCIUM;COLECALCIFEROL;MAGNESIUM;ZINC] [Concomitant]
     Indication: Supplementation therapy
     Route: 048
  3. NOVORAPID [Suspect]
     Active Substance: INSULIN ASPART
     Indication: Type 1 diabetes mellitus
     Route: 058
     Dates: start: 2025
  4. NOVORAPID [Suspect]
     Active Substance: INSULIN ASPART
     Dosage: 16 IU, QD (5U WITH BREAKFAST, 5U WITH LUNCH, 6U WITH DINNER)
     Route: 058
     Dates: start: 2025

REACTIONS (3)
  - Diabetic ketoacidosis [Recovered/Resolved]
  - Muscle contractions involuntary [Recovered/Resolved]
  - Hyperglycaemia [Not Recovered/Not Resolved]
